FAERS Safety Report 7269997-9 (Version None)
Quarter: 2011Q1

REPORT INFORMATION
  Report Type: 
  Country: None (occurrence: None)
  Receive Date: 20110125
  Receipt Date: 20110111
  Transmission Date: 20110831
  Serious: Yes (Other)
  Sender: FDA-Public Use
  Company Number: AUR-APL-2011-00202

PATIENT
  Age: 9 Year
  Sex: Female

DRUGS (5)
  1. ALBUTEROL [Concomitant]
  2. VALPROATE SODIUM [Concomitant]
  3. AMOXICILLIN [Suspect]
     Indication: UPPER RESPIRATORY TRACT INFECTION
     Dosage: ORAL
     Route: 048
     Dates: start: 20101220, end: 20101228
  4. LAMOTRIGINE [Suspect]
     Indication: EPILEPSY
     Dosage: 5-10MG-ORAL
     Route: 048
     Dates: start: 20101213
  5. BECLOMETHASONE DIPROPIONATE [Concomitant]

REACTIONS (8)
  - CHAPPED LIPS [None]
  - ORAL PAIN [None]
  - RASH GENERALISED [None]
  - LIP DRY [None]
  - EYE PAIN [None]
  - UPPER RESPIRATORY TRACT INFECTION [None]
  - STEVENS-JOHNSON SYNDROME [None]
  - RHINITIS [None]
